FAERS Safety Report 22673610 (Version 7)
Quarter: 2025Q3

REPORT INFORMATION
  Report Type: Report from Study
  Country: CA (occurrence: CA)
  Receive Date: 20230705
  Receipt Date: 20250929
  Transmission Date: 20251020
  Serious: Yes (Other)
  Sender: TAKEDA
  Company Number: CA-TAKEDA-2023TUS039682

PATIENT
  Age: 46 Year
  Sex: Female
  Weight: 135 kg

DRUGS (31)
  1. HUMAN IMMUNOGLOBULIN G [Suspect]
     Active Substance: HUMAN IMMUNOGLOBULIN G
     Indication: Primary immunodeficiency syndrome
     Dosage: 16 GRAM, 1/WEEK
     Dates: start: 20180604
  2. HUMAN IMMUNOGLOBULIN G [Suspect]
     Active Substance: HUMAN IMMUNOGLOBULIN G
     Dosage: 16 GRAM, 1/WEEK
  3. HUMAN IMMUNOGLOBULIN G [Suspect]
     Active Substance: HUMAN IMMUNOGLOBULIN G
     Dosage: 16 GRAM, 1/WEEK
  4. HUMAN IMMUNOGLOBULIN G [Suspect]
     Active Substance: HUMAN IMMUNOGLOBULIN G
     Dosage: 16 GRAM, 1/WEEK
  5. ALBUTEROL [Suspect]
     Active Substance: ALBUTEROL
     Indication: Product used for unknown indication
  6. POTASSIUM [Concomitant]
     Active Substance: POTASSIUM
  7. CETIRIZINE [Concomitant]
     Active Substance: CETIRIZINE HYDROCHLORIDE
     Dosage: 20 MILLIGRAM, BID
  8. MONTELUKAST [Concomitant]
     Active Substance: MONTELUKAST
  9. HYDROXYZINE [Concomitant]
     Active Substance: HYDROXYZINE HYDROCHLORIDE
     Dosage: 60 MILLIGRAM, QD
  10. HYDROXYZINE [Concomitant]
     Active Substance: HYDROXYZINE HYDROCHLORIDE
     Dosage: 75 MILLIGRAM, QD
  11. HYDROXYZINE [Concomitant]
     Active Substance: HYDROXYZINE HYDROCHLORIDE
     Dosage: 20 MILLIGRAM, TID
  12. VENLAFAXINE [Concomitant]
     Active Substance: VENLAFAXINE HYDROCHLORIDE
  13. RISPERIDONE [Concomitant]
     Active Substance: RISPERIDONE
  14. RISPERIDONE [Concomitant]
     Active Substance: RISPERIDONE
     Dosage: UNK UNK, TID
  15. VITAMIN B12 [Concomitant]
     Active Substance: CYANOCOBALAMIN
  16. BENADRYL [Concomitant]
     Active Substance: DIPHENHYDRAMINE HYDROCHLORIDE
     Dosage: 100 MILLIGRAM, QD
  17. BENADRYL [Concomitant]
     Active Substance: DIPHENHYDRAMINE HYDROCHLORIDE
     Dosage: 50 MILLIGRAM, QD
  18. BENADRYL [Concomitant]
     Active Substance: DIPHENHYDRAMINE HYDROCHLORIDE
     Dosage: 50 MILLIGRAM, BID
  19. VITAMIN D [Concomitant]
     Active Substance: VITAMIN D NOS
  20. PREDNISONE [Concomitant]
     Active Substance: PREDNISONE
     Dosage: 19 MILLIGRAM, QD
  21. PREDNISONE [Concomitant]
     Active Substance: PREDNISONE
  22. XOLAIR [Concomitant]
     Active Substance: OMALIZUMAB
     Dosage: 300 MILLIGRAM, Q3WEEKS
  23. XOLAIR [Concomitant]
     Active Substance: OMALIZUMAB
     Dosage: 450 MILLIGRAM, Q3WEEKS
  24. XOLAIR [Concomitant]
     Active Substance: OMALIZUMAB
     Dosage: 300 MILLIGRAM, Q3WEEKS
  25. BILASTINE [Concomitant]
     Active Substance: BILASTINE
  26. KETOTIFEN [Concomitant]
     Active Substance: KETOTIFEN
     Dosage: 1 MILLIGRAM, BID
  27. CANNABIS SATIVA SUBSP. INDICA TOP [Concomitant]
     Active Substance: CANNABIS SATIVA SUBSP. INDICA TOP
  28. ETHACRYNIC ACID [Concomitant]
     Active Substance: ETHACRYNIC ACID
  29. METFORMIN [Concomitant]
     Active Substance: METFORMIN HYDROCHLORIDE
     Dosage: 250 MILLIGRAM, BID
  30. METFORMIN [Concomitant]
     Active Substance: METFORMIN HYDROCHLORIDE
     Dosage: 500 MILLIGRAM, BID
  31. OMALIZUMAB [Concomitant]
     Active Substance: OMALIZUMAB

REACTIONS (13)
  - Mast cell activation syndrome [Not Recovered/Not Resolved]
  - Anaphylactic reaction [Recovered/Resolved]
  - Weight decreased [Unknown]
  - Memory impairment [Unknown]
  - Product supply issue [Unknown]
  - Incorrect dose administered [Unknown]
  - Product use issue [Unknown]
  - Balance disorder [Recovered/Resolved]
  - Dyspnoea [Recovered/Resolved]
  - Arthralgia [Unknown]
  - Dizziness [Recovered/Resolved]
  - Back pain [Unknown]
  - Tachycardia [Unknown]

NARRATIVE: CASE EVENT DATE: 20250913
